FAERS Safety Report 4900076-9 (Version None)
Quarter: 2006Q1

REPORT INFORMATION
  Report Type: 
  Country: None (occurrence: None)
  Receive Date: 20060203
  Receipt Date: 20051116
  Transmission Date: 20060701
  Serious: Yes (Other)
  Sender: FDA-Public Use
  Company Number: RO-NOVOPROD-248761

PATIENT
  Age: 81 Year
  Sex: Male
  Weight: 58 kg

DRUGS (5)
  1. ACTRAPID [Suspect]
     Dosage: 10 IU, UNK
     Route: 030
     Dates: start: 20050920, end: 20050920
  2. AMPICILLIN SODIUM [Concomitant]
     Dosage: 2 G, UNK
     Route: 030
  3. METAMIZOL NATRIUM [Concomitant]
     Dosage: 2 G, UNK
     Route: 030
  4. AMINOPHYLLIN [Concomitant]
     Dosage: 2 G, UNK
     Route: 042
  5. HYDROCORTISON                           /CZE/ [Concomitant]
     Indication: LUNG DISORDER
     Dosage: 200 MG, UNK
     Dates: start: 20050912, end: 20050921

REACTIONS (6)
  - DYSPNOEA [None]
  - HYPERHIDROSIS [None]
  - HYPERTENSION [None]
  - NERVOUSNESS [None]
  - VERTIGO [None]
  - VOMITING [None]
